FAERS Safety Report 5905250-0 (Version None)
Quarter: 2008Q4

REPORT INFORMATION
  Report Type: 
  Country: None (occurrence: None)
  Receive Date: 20081001
  Receipt Date: 20080919
  Transmission Date: 20090506
  Serious: Yes (Other)
  Sender: FDA-Public Use
  Company Number: CH-PFIZER INC-2008048137

PATIENT
  Sex: Female
  Weight: 59 kg

DRUGS (2)
  1. CHANTIX [Suspect]
     Indication: SMOKING CESSATION THERAPY
     Dosage: DAILY DOSE:2MG
     Dates: start: 20080115, end: 20080331
  2. SORTIS [Concomitant]
     Dosage: DAILY DOSE:10MG
     Dates: start: 20040601

REACTIONS (1)
  - HYPERTHYROIDISM [None]
